FAERS Safety Report 11521974 (Version 1)
Quarter: 2015Q3

REPORT INFORMATION
  Report Type: Spontaneous
  Country: US (occurrence: US)
  Receive Date: 20150903
  Receipt Date: 20150903
  Transmission Date: 20151125
  Serious: No
  Sender: FDA-Public Use
  Company Number: US-ELI_LILLY_AND_COMPANY-US201301003524

PATIENT
  Age: 22 Year
  Sex: Female

DRUGS (4)
  1. DULOXETINE HYDROCHLORIDE. [Suspect]
     Active Substance: DULOXETINE HYDROCHLORIDE
     Dosage: 50 MG, QD
  2. DULOXETINE HYDROCHLORIDE. [Suspect]
     Active Substance: DULOXETINE HYDROCHLORIDE
     Dosage: 50 MG, QOD
  3. DULOXETINE HYDROCHLORIDE. [Suspect]
     Active Substance: DULOXETINE HYDROCHLORIDE
     Indication: FIBROMYALGIA
     Dosage: 60 MG, QD
  4. DULOXETINE HYDROCHLORIDE. [Suspect]
     Active Substance: DULOXETINE HYDROCHLORIDE
     Dosage: 60 MG, QOD

REACTIONS (7)
  - Arthritis [Unknown]
  - Headache [Unknown]
  - Somnolence [Unknown]
  - Dizziness [Unknown]
  - Pain [Unknown]
  - Drug withdrawal syndrome [Unknown]
  - Nausea [Unknown]
